FAERS Safety Report 9125456 (Version 4)
Quarter: 2013Q2

REPORT INFORMATION
  Report Type: Report from Study
  Country: JP (occurrence: JP)
  Receive Date: 20130121
  Receipt Date: 20130411
  Transmission Date: 20140414
  Serious: Yes (Hospitalization, Disabling)
  Sender: FDA-Public Use
  Company Number: JP-NOVOPROD-368636

PATIENT
  Age: 10 Year
  Sex: Male
  Weight: 31 kg

DRUGS (3)
  1. NORDITROPIN FLEXPRO 10 MG/ML [Suspect]
     Indication: GROWTH HORMONE DEFICIENCY
     Dosage: 4.5 MG, QW
     Route: 058
     Dates: start: 20100915, end: 20120223
  2. THYRADIN S [Concomitant]
     Indication: HYPOTHYROIDISM
     Dosage: 25- 50 MCG
     Route: 048
     Dates: start: 20101111
  3. DESMOPRESSIN ACETATE [Concomitant]
     Indication: DIABETES INSIPIDUS
     Dosage: 7 ?G, QD
     Route: 045
     Dates: start: 20080730

REACTIONS (3)
  - Pituitary tumour [Recovering/Resolving]
  - Hypothyroidism [Not Recovered/Not Resolved]
  - Condition aggravated [Not Recovered/Not Resolved]
